FAERS Safety Report 12347660 (Version 3)
Quarter: 2016Q2

REPORT INFORMATION
  Report Type: Spontaneous
  Country: FR (occurrence: FR)
  Receive Date: 20160509
  Receipt Date: 20160616
  Transmission Date: 20160815
  Serious: Yes (Other)
  Sender: FDA-Public Use
  Company Number: FR-JNJFOC-20160501857

PATIENT
  Age: 48 Year
  Sex: Female
  Weight: 117 kg

DRUGS (10)
  1. ENALAPRIL [Concomitant]
     Active Substance: ENALAPRIL
     Indication: HYPERTENSION
     Dosage: DOSE: 10 (UNIT UNSPECIFIED)
     Route: 065
     Dates: start: 201506
  2. FUROSEMIDE. [Concomitant]
     Active Substance: FUROSEMIDE
     Indication: HYPERTENSION
     Dosage: DOSE: 20 (UNIT UNSPECIFIED)
     Route: 065
     Dates: start: 201601
  3. MONTELUKAST [Concomitant]
     Active Substance: MONTELUKAST SODIUM
     Indication: ASTHMA
     Dosage: DOSE: 10 (UNIT UNSPECIFIED)
     Route: 065
     Dates: start: 2013
  4. STELARA [Suspect]
     Active Substance: USTEKINUMAB
     Indication: PSORIATIC ARTHROPATHY
     Route: 058
     Dates: start: 20160512
  5. STELARA [Suspect]
     Active Substance: USTEKINUMAB
     Indication: PSORIATIC ARTHROPATHY
     Route: 058
     Dates: start: 20160208
  6. SYMBICORT [Concomitant]
     Active Substance: BUDESONIDE\FORMOTEROL FUMARATE DIHYDRATE
     Indication: ASTHMA
     Dosage: DOSE: 400 (UNIT UNSPECIFIED)
     Route: 065
  7. ONBREZ [Concomitant]
     Active Substance: INDACATEROL
     Indication: ASTHMA
     Dosage: DOSE: 150 (UNIT UNSPECIFIED)
     Route: 065
  8. STELARA [Suspect]
     Active Substance: USTEKINUMAB
     Indication: PSORIATIC ARTHROPATHY
     Route: 058
     Dates: start: 20151005
  9. LEVOTHYROXINE. [Concomitant]
     Active Substance: LEVOTHYROXINE
     Indication: HYPOTHYROIDISM
     Dosage: DOSE: 150 (UNIT UNSPECIFIED)??START DATE: MORE THAN 5 YEARS
     Route: 065
  10. STELARA [Suspect]
     Active Substance: USTEKINUMAB
     Indication: PSORIATIC ARTHROPATHY
     Route: 058
     Dates: start: 20151105

REACTIONS (3)
  - Drug ineffective [Unknown]
  - Post herpetic neuralgia [Unknown]
  - Herpes zoster [Recovered/Resolved]

NARRATIVE: CASE EVENT DATE: 20160331
